FAERS Safety Report 5621304-0 (Version None)
Quarter: 2008Q1

REPORT INFORMATION
  Report Type: 
  Country: None (occurrence: None)
  Receive Date: 20080211
  Receipt Date: 20080128
  Transmission Date: 20080703
  Serious: Yes (Other)
  Sender: FDA-Public Use
  Company Number: US-BAYER-200810432NA

PATIENT
  Age: 40 Year
  Sex: Female

DRUGS (4)
  1. BETASERON [Suspect]
     Indication: RELAPSING-REMITTING MULTIPLE SCLEROSIS
     Route: 058
     Dates: start: 20070927
  2. BETASERON [Suspect]
     Dosage: TOTAL DAILY DOSE: 4 MIU
     Route: 058
  3. BETASERON [Suspect]
     Dosage: TOTAL DAILY DOSE: 8 MIU
     Route: 058
  4. ZITHROMAX [Concomitant]
     Indication: PHARYNGITIS STREPTOCOCCAL
     Dates: start: 20071001

REACTIONS (6)
  - DYSPNOEA [None]
  - ENDOMETRITIS [None]
  - HOT FLUSH [None]
  - MENORRHAGIA [None]
  - OVARIAN CYST [None]
  - PREMATURE MENOPAUSE [None]
